FAERS Safety Report 16476661 (Version 1)
Quarter: 2019Q2

REPORT INFORMATION
  Report Type: Spontaneous
  Country: JP (occurrence: JP)
  Receive Date: 20190626
  Receipt Date: 20190626
  Transmission Date: 20190711
  Serious: Yes (Hospitalization)
  Sender: FDA-Public Use
  Company Number: JP-009507513-1905JPN003430J

PATIENT
  Age: 74 Year
  Sex: Male

DRUGS (3)
  1. CARBOPLATIN. [Concomitant]
     Active Substance: CARBOPLATIN
     Dosage: 6AUC, Q3W
     Route: 041
     Dates: start: 201905, end: 201905
  2. KEYTRUDA [Suspect]
     Active Substance: PEMBROLIZUMAB
     Indication: NON-SMALL CELL LUNG CANCER
     Dosage: 200 MILLIGRAM, Q3W
     Route: 041
     Dates: start: 201905, end: 201905
  3. ABRAXANE [Concomitant]
     Active Substance: PACLITAXEL
     Dosage: 100 MILLIGRAM/ WEEK,ADMINISTER 3-WEEKS ON/ 1-WEEK OFF
     Route: 041
     Dates: start: 201905, end: 201905

REACTIONS (1)
  - Decreased activity [Recovering/Resolving]

NARRATIVE: CASE EVENT DATE: 201905
